FAERS Safety Report 6766434-5 (Version None)
Quarter: 2010Q2

REPORT INFORMATION
  Report Type: 
  Country: None (occurrence: None)
  Receive Date: 20100611
  Receipt Date: 20100603
  Transmission Date: 20101027
  Serious: Yes (Hospitalization, Other)
  Sender: FDA-Public Use
  Company Number: JP-JNJFOC-20100602771

PATIENT
  Sex: Male
  Weight: 64 kg

DRUGS (6)
  1. LOPEMIN [Suspect]
     Indication: DIARRHOEA
     Route: 048
  2. CAMPTOSAR [Suspect]
     Indication: SMALL CELL LUNG CANCER STAGE UNSPECIFIED
     Route: 042
  3. CAMPTOSAR [Suspect]
     Dosage: CYCLIC
     Route: 042
  4. ALBUMIN TANNATE [Concomitant]
     Route: 065
  5. LAC B [Concomitant]
     Route: 065
  6. CATLEP [Concomitant]
     Route: 065

REACTIONS (4)
  - ANAEMIA [None]
  - ILEUS [None]
  - LEUKOPENIA [None]
  - THROMBOCYTOPENIA [None]
